FAERS Safety Report 6736722-7 (Version None)
Quarter: 2010Q2

REPORT INFORMATION
  Report Type: 
  Country: None (occurrence: None)
  Receive Date: 20100520
  Receipt Date: 20100520
  Transmission Date: 20101027
  Serious: Yes (Life-Threatening, Disabling)
  Sender: FDA-Public Use
  Company Number: None

PATIENT
  Age: 71 Year
  Sex: Female
  Weight: 90.9 kg

DRUGS (2)
  1. AVELOX [Suspect]
     Indication: LUNG CONSOLIDATION
     Dosage: 400MG DAILY IV
     Route: 042
     Dates: start: 20100518, end: 20100518
  2. AVELOX [Suspect]
     Indication: PNEUMONIA
     Dosage: 400MG DAILY IV
     Route: 042
     Dates: start: 20100518, end: 20100518

REACTIONS (2)
  - ANAPHYLACTIC REACTION [None]
  - TACHYCARDIA [None]
